FAERS Safety Report 20876161 (Version 2)
Quarter: 2023Q4

REPORT INFORMATION
  Report Type: Report from Study
  Country: US (occurrence: US)
  Receive Date: 20220526
  Receipt Date: 20231220
  Transmission Date: 20240110
  Serious: Yes (Hospitalization, Other)
  Sender: FDA-Public Use
  Company Number: US-ABBVIE-22K-163-4410487-00

PATIENT
  Sex: Male

DRUGS (1)
  1. HUMIRA [Suspect]
     Active Substance: ADALIMUMAB
     Indication: Product used for unknown indication
     Route: 058
     Dates: start: 20180501, end: 20221214

REACTIONS (6)
  - Gout [Unknown]
  - Skeletal injury [Recovered/Resolved]
  - Feeling abnormal [Unknown]
  - Pain [Unknown]
  - Musculoskeletal stiffness [Unknown]
  - Infected bunion [Recovered/Resolved]

NARRATIVE: CASE EVENT DATE: 20200101
